FAERS Safety Report 8790552 (Version 1)
Quarter: 2012Q4

REPORT INFORMATION
  Report Type: Spontaneous
  Country: US (occurrence: None)
  Receive Date: 20120912
  Receipt Date: 20120912
  Transmission Date: 20130627
  Serious: Yes (Life-Threatening, Hospitalization)
  Sender: FDA-Public Use
  Company Number: None

PATIENT
  Age: 59 Year
  Sex: Male

DRUGS (1)
  1. SOTALOL [Suspect]
     Indication: ATRIAL FIBRILLATION
     Dosage: 1 TABLET TWICE A DAY

REACTIONS (8)
  - Palpitations [None]
  - Chest pain [None]
  - Heart rate irregular [None]
  - Syncope [None]
  - Atrial fibrillation [None]
  - Overdose [None]
  - Product quality issue [None]
  - Product substitution issue [None]
